FAERS Safety Report 14617236 (Version 2)
Quarter: 2019Q2

REPORT INFORMATION
  Report Type: Spontaneous
  Country: GB (occurrence: GB)
  Receive Date: 20180309
  Receipt Date: 20190624
  Transmission Date: 20190711
  Serious: Yes (Other)
  Sender: FDA-Public Use
  Company Number: GB-TORRENT-00016214

PATIENT
  Age: 47 Year
  Sex: Female
  Weight: 64 kg

DRUGS (2)
  1. SUMATRIPTAN. [Concomitant]
     Active Substance: SUMATRIPTAN
     Indication: MIGRAINE
     Dosage: 25-50MG
  2. OLANZAPINE. [Suspect]
     Active Substance: OLANZAPINE
     Indication: ACUTE PSYCHOSIS
     Route: 048
     Dates: start: 20160707, end: 20160901

REACTIONS (7)
  - Terminal insomnia [Recovering/Resolving]
  - Suicidal ideation [Unknown]
  - Depression [Unknown]
  - Palpitations [Recovering/Resolving]
  - Nausea [Recovering/Resolving]
  - Anxiety [Recovering/Resolving]
  - Withdrawal syndrome [Unknown]

NARRATIVE: CASE EVENT DATE: 20160707
